FAERS Safety Report 9870440 (Version 1)
Quarter: 2014Q1

REPORT INFORMATION
  Report Type: Spontaneous
  Country: US (occurrence: None)
  Receive Date: 20140204
  Receipt Date: 20140204
  Transmission Date: 20141002
  Serious: No
  Sender: FDA-Public Use
  Company Number: None

PATIENT
  Age: 60 Year
  Sex: Female
  Weight: 64.41 kg

DRUGS (1)
  1. BONIVA 150 MG [Suspect]
     Indication: OSTEOPOROSIS
     Dosage: 1 PILL  ONE PER MONTH  TAKEN BY MOUTH
     Route: 048
     Dates: start: 20140131

REACTIONS (7)
  - Influenza like illness [None]
  - Myalgia [None]
  - Nausea [None]
  - Decreased appetite [None]
  - Feeling of body temperature change [None]
  - Fatigue [None]
  - Pain [None]
